FAERS Safety Report 10954395 (Version 1)
Quarter: 2015Q1

REPORT INFORMATION
  Report Type: Spontaneous
  Country: US (occurrence: US)
  Receive Date: 20150325
  Receipt Date: 20150325
  Transmission Date: 20150721
  Serious: No
  Sender: FDA-Public Use
  Company Number: US-BAYER-2015-067196

PATIENT
  Age: 30 Year
  Sex: Female
  Weight: 44 kg

DRUGS (1)
  1. ALEVE [Suspect]
     Active Substance: NAPROXEN SODIUM
     Indication: MIGRAINE
     Dosage: UNK
     Route: 048

REACTIONS (3)
  - Nausea [Unknown]
  - Nervousness [Unknown]
  - Medication error [None]

NARRATIVE: CASE EVENT DATE: 20150321
